FAERS Safety Report 14245506 (Version 2)
Quarter: 2018Q1

REPORT INFORMATION
  Report Type: Spontaneous
  Country: FR (occurrence: FR)
  Receive Date: 20171203
  Receipt Date: 20180319
  Transmission Date: 20180508
  Serious: Yes (Other)
  Sender: FDA-Public Use
  Company Number: FR-MERCK KGAA-2036499

PATIENT
  Age: 58 Year
  Sex: Female

DRUGS (1)
  1. NOVOTHYROX [Suspect]
     Active Substance: LEVOTHYROXINE SODIUM
     Indication: PRODUCT USED FOR UNKNOWN INDICATION
     Dates: start: 20170712

REACTIONS (17)
  - Blood pressure decreased [None]
  - Tachycardia [None]
  - Arrhythmia [None]
  - Dyspnoea [None]
  - Libido decreased [None]
  - Asthenia [None]
  - Myalgia [None]
  - Pain [None]
  - Arthralgia [None]
  - Decreased interest [None]
  - Muscle spasms [None]
  - Affective disorder [None]
  - Quality of life decreased [None]
  - Sleep disorder [None]
  - Fatigue [None]
  - Depressed mood [None]
  - Loss of personal independence in daily activities [None]

NARRATIVE: CASE EVENT DATE: 2017
